FAERS Safety Report 9355851 (Version 1)
Quarter: 2013Q2

REPORT INFORMATION
  Report Type: Report from Study
  Country: AU (occurrence: AU)
  Receive Date: 20130619
  Receipt Date: 20130619
  Transmission Date: 20140414
  Serious: Yes (Hospitalization, Other)
  Sender: FDA-Public Use
  Company Number: AU-ROCHE-1237610

PATIENT
  Age: 88 Year
  Sex: Female

DRUGS (2)
  1. RANIBIZUMAB [Suspect]
     Indication: AGE-RELATED MACULAR DEGENERATION
     Dosage: LEFT EYE INJECCTION
     Route: 065
  2. RANIBIZUMAB [Suspect]
     Route: 050
     Dates: start: 20111214

REACTIONS (4)
  - Blindness unilateral [Unknown]
  - Fatigue [Unknown]
  - Anxiety [Unknown]
  - Visual acuity reduced [Unknown]
